FAERS Safety Report 5166657-5 (Version None)
Quarter: 2006Q4

REPORT INFORMATION
  Report Type: 
  Country: None (occurrence: None)
  Receive Date: 20061129
  Receipt Date: 20061122
  Transmission Date: 20070319
  Serious: Yes (Other)
  Sender: FDA-Public Use
  Company Number: GXKR2006GB07549

PATIENT
  Age: 80 Year
  Sex: Female
  Weight: 63 kg

DRUGS (4)
  1. DOXAZOSIN (NGX)(DOXAZOSIN) UNKNOWN [Suspect]
     Indication: HYPERTENSION
     Dosage: 4 MG, ORAL
     Route: 048
     Dates: start: 20061031, end: 20061031
  2. LISINOPRIL [Concomitant]
  3. NABUMETONE [Concomitant]
  4. OMEPRAZOLE [Concomitant]

REACTIONS (6)
  - ANGINA PECTORIS [None]
  - ARRHYTHMIA [None]
  - CHEST PAIN [None]
  - DIZZINESS [None]
  - PALPITATIONS [None]
  - VOMITING [None]
